FAERS Safety Report 21255058 (Version 1)
Quarter: 2022Q3

REPORT INFORMATION
  Report Type: Spontaneous
  Country: US (occurrence: US)
  Receive Date: 20220825
  Receipt Date: 20220825
  Transmission Date: 20221027
  Serious: Yes (Other)
  Sender: FDA-Public Use
  Company Number: US-TEVA-2022-US-2066484

PATIENT
  Age: 3 Decade
  Sex: Male

DRUGS (25)
  1. RISPERIDONE [Suspect]
     Active Substance: RISPERIDONE
     Indication: Aggression
     Dosage: 1 MILLIGRAM DAILY;
     Route: 065
     Dates: start: 2019, end: 2019
  2. RISPERIDONE [Suspect]
     Active Substance: RISPERIDONE
     Indication: Psychotic symptom
     Route: 065
     Dates: start: 2019
  3. RISPERIDONE [Suspect]
     Active Substance: RISPERIDONE
     Indication: Schizophrenia
  4. CLOZAPINE [Suspect]
     Active Substance: CLOZAPINE
     Indication: Psychotic symptom
     Dosage: FOR 3 DAYS
     Route: 065
     Dates: start: 2019, end: 2019
  5. CLOZAPINE [Suspect]
     Active Substance: CLOZAPINE
     Indication: Schizophrenia
     Dosage: FOR 3 DAYS
     Route: 065
     Dates: start: 2019, end: 2019
  6. CLOZAPINE [Suspect]
     Active Substance: CLOZAPINE
     Dosage: FOR 3 DAYS
     Route: 065
     Dates: start: 2019, end: 2019
  7. CLOZAPINE [Suspect]
     Active Substance: CLOZAPINE
     Dosage: FOR 3 DAYS
     Route: 065
     Dates: start: 2019, end: 2019
  8. CLOZAPINE [Suspect]
     Active Substance: CLOZAPINE
     Dosage: FOR 3 DAYS
     Route: 065
     Dates: start: 2019
  9. QUETIAPINE [Suspect]
     Active Substance: QUETIAPINE
     Indication: Psychotic symptom
     Dosage: TITRATED DOSE; INITIAL DOSE NOT STATED
     Route: 065
     Dates: start: 201906, end: 201908
  10. QUETIAPINE [Suspect]
     Active Substance: QUETIAPINE
     Indication: Schizophrenia
  11. LORAZEPAM [Concomitant]
     Active Substance: LORAZEPAM
     Indication: Catatonia
     Dosage: 3 MILLIGRAM DAILY; THREE TIMES DAILY; TITRATED DOSE; INITIAL DOSE NOT STATED
     Route: 065
     Dates: start: 2019
  12. LORAZEPAM [Concomitant]
     Active Substance: LORAZEPAM
     Dosage: 6 MILLIGRAM DAILY; THREE TIMES DAILY
     Route: 065
     Dates: start: 2019
  13. LORAZEPAM [Concomitant]
     Active Substance: LORAZEPAM
     Dosage: 9 MILLIGRAM DAILY; THREE TIMES DAILY
     Route: 065
     Dates: start: 2019
  14. LORAZEPAM [Concomitant]
     Active Substance: LORAZEPAM
     Dosage: THREE TIMES DAILY
     Route: 065
     Dates: start: 2019
  15. LORAZEPAM [Concomitant]
     Active Substance: LORAZEPAM
     Dosage: 18 MILLIGRAM DAILY; THREE TIMES DAILY
     Route: 065
     Dates: start: 2019
  16. LORAZEPAM [Concomitant]
     Active Substance: LORAZEPAM
     Dosage: 21 MILLIGRAM DAILY; THREE TIMES DAILY
     Route: 065
     Dates: start: 2019
  17. LORAZEPAM [Concomitant]
     Active Substance: LORAZEPAM
     Dosage: THREE TIMES DAILY
     Route: 065
     Dates: start: 2019
  18. ESCITALOPRAM [Concomitant]
     Active Substance: ESCITALOPRAM OXALATE
     Indication: Major depression
     Route: 065
     Dates: start: 2019
  19. OLANZAPINE [Concomitant]
     Active Substance: OLANZAPINE
     Indication: Psychotic symptom
     Dosage: ORALLY DISINTEGRATING TABLET
     Route: 048
     Dates: start: 2019, end: 2019
  20. OLANZAPINE [Concomitant]
     Active Substance: OLANZAPINE
     Indication: Schizophrenia
     Dosage: NIGHTLY; ORALLY DISINTEGRATING TABLET
     Route: 048
     Dates: start: 2019, end: 2019
  21. OLANZAPINE [Concomitant]
     Active Substance: OLANZAPINE
     Dosage: NIGHTLY; ORALLY DISINTEGRATING TABLET
     Route: 048
     Dates: start: 2019, end: 2019
  22. OLANZAPINE [Concomitant]
     Active Substance: OLANZAPINE
     Dosage: NIGHTLY; ORALLY DISINTEGRATING TABLET
     Route: 048
     Dates: start: 2019, end: 2019
  23. OLANZAPINE [Concomitant]
     Active Substance: OLANZAPINE
     Dosage: NIGHTLY; ORALLY DISINTEGRATING TABLET
     Route: 048
     Dates: start: 2019, end: 2019
  24. OLANZAPINE [Concomitant]
     Active Substance: OLANZAPINE
     Dosage: NIGHTLY; ORALLY DISINTEGRATING TABLET
     Route: 048
     Dates: start: 2019
  25. LEVOTHYROXINE [Concomitant]
     Active Substance: LEVOTHYROXINE
     Indication: Hypothyroidism
     Route: 065

REACTIONS (3)
  - Catatonia [Recovered/Resolved]
  - Myocarditis [Unknown]
  - Drug ineffective [Unknown]

NARRATIVE: CASE EVENT DATE: 20190101
